FAERS Safety Report 17263032 (Version 1)
Quarter: 2020Q1

REPORT INFORMATION
  Report Type: Spontaneous
  Country: US (occurrence: US)
  Receive Date: 20200113
  Receipt Date: 20200113
  Transmission Date: 20200409
  Serious: Yes (Other)
  Sender: FDA-Public Use
  Company Number: US-CURIUM-199000005

PATIENT
  Age: 57 Year
  Sex: Female

DRUGS (2)
  1. SODIUM PERTECHNETATE TC 99M [Suspect]
     Active Substance: TECHNETIUM TC-99M SODIUM PERTECHNETATE
     Indication: PRODUCT USED FOR UNKNOWN INDICATION
     Route: 065
  2. TECHNESCAN PYP [Suspect]
     Active Substance: TECHNETIUM TC-99M PYROPHOSPHATE
     Indication: PRODUCT USED FOR UNKNOWN INDICATION
     Route: 065

REACTIONS (3)
  - Sepsis [Unknown]
  - Chills [Unknown]
  - Pyrexia [Unknown]
